FAERS Safety Report 11465088 (Version 1)
Quarter: 2015Q3

REPORT INFORMATION
  Report Type: Spontaneous
  Country: US (occurrence: US)
  Receive Date: 20150907
  Receipt Date: 20150907
  Transmission Date: 20151125
  Serious: Yes (Other)
  Sender: FDA-Public Use
  Company Number: US-PAR PHARMACEUTICAL COMPANIES-2015SCPR014232

PATIENT

DRUGS (18)
  1. LYRICA [Suspect]
     Active Substance: PREGABALIN
     Indication: FIBROMYALGIA
     Dosage: 1 DF, BID
     Dates: start: 201508, end: 201508
  2. DAYPRO [Suspect]
     Active Substance: OXAPROZIN
     Dosage: 300 MG, OD
     Route: 065
     Dates: start: 201508, end: 201508
  3. HYDROCODONE [Suspect]
     Active Substance: HYDROCODONE
     Dosage: 7.5/325, QID
     Route: 065
  4. MS CONTIN [Concomitant]
     Active Substance: MORPHINE SULFATE
     Indication: PAIN
     Dosage: UNK, UNKNOWN
     Route: 065
     Dates: start: 20150707
  5. HYDROCODONE [Suspect]
     Active Substance: HYDROCODONE
     Indication: PAIN
     Dosage: UNK, UNKNOWN
     Route: 065
  6. FENTANYL TRANSDERMAL SYSTEM [Suspect]
     Active Substance: FENTANYL
     Indication: PAIN
     Dosage: UNK, UNKNOWN
     Route: 065
  7. DAYPRO [Suspect]
     Active Substance: OXAPROZIN
     Indication: ANTIINFLAMMATORY THERAPY
     Dosage: 600 MG, BID
     Route: 048
     Dates: start: 20150728, end: 201508
  8. LYRICA [Suspect]
     Active Substance: PREGABALIN
     Indication: NEUROPATHY PERIPHERAL
     Dosage: 1 DF, TID
     Route: 065
     Dates: start: 201508, end: 2015
  9. HYDROCHLOROTHIAZIDE. [Suspect]
     Active Substance: HYDROCHLOROTHIAZIDE
     Dosage: HALF TABLET, DAILY
     Route: 048
  10. LYRICA [Suspect]
     Active Substance: PREGABALIN
     Indication: NEUROPATHY PERIPHERAL
  11. CELEBREX [Suspect]
     Active Substance: CELECOXIB
     Indication: PRODUCT USED FOR UNKNOWN INDICATION
     Dosage: 200 MG, DAILY
     Route: 065
     Dates: start: 201406
  12. CELEBREX [Suspect]
     Active Substance: CELECOXIB
     Dosage: 200 MG, DAILY
     Route: 065
     Dates: start: 201504, end: 2015
  13. AMITRIPTYLINE [Suspect]
     Active Substance: AMITRIPTYLINE
     Indication: PRODUCT USED FOR UNKNOWN INDICATION
     Dosage: UNK, UNKNOWN
     Route: 065
  14. TRAMADOL ER [Suspect]
     Active Substance: TRAMADOL HYDROCHLORIDE
     Indication: PAIN
     Dosage: UNK, UNKNOWN
     Route: 065
     Dates: start: 2015, end: 2015
  15. LYRICA [Suspect]
     Active Substance: PREGABALIN
     Indication: FIBROMYALGIA
     Dosage: 1 DF, BID
     Route: 065
  16. NEURONTIN [Suspect]
     Active Substance: GABAPENTIN
     Indication: PAIN
     Dosage: UNK, UNKNOWN
     Route: 065
     Dates: start: 201501
  17. HYDROCODONE [Suspect]
     Active Substance: HYDROCODONE
     Dosage: UNK, UNKNOWN
     Route: 065
     Dates: start: 2015
  18. HYDROCHLOROTHIAZIDE. [Suspect]
     Active Substance: HYDROCHLOROTHIAZIDE
     Indication: OEDEMA
     Dosage: UNK, UNKNOWN
     Route: 048

REACTIONS (21)
  - Weight increased [Not Recovered/Not Resolved]
  - Gait disturbance [Unknown]
  - Neuropathy peripheral [Unknown]
  - Diarrhoea [Recovering/Resolving]
  - Osteoporosis [Unknown]
  - Peripheral swelling [Unknown]
  - Fluid retention [Recovering/Resolving]
  - Application site vesicles [Unknown]
  - Cataract [Unknown]
  - Dizziness [Not Recovered/Not Resolved]
  - Product quality issue [Unknown]
  - Hepatitis C [Unknown]
  - Dermatitis contact [Unknown]
  - Application site reaction [Unknown]
  - Mobility decreased [Unknown]
  - Fibromyalgia [Unknown]
  - Somnolence [Not Recovered/Not Resolved]
  - Drug ineffective [Unknown]
  - Metabolic disorder [Unknown]
  - Vision blurred [Not Recovered/Not Resolved]
  - Oedema [Recovering/Resolving]

NARRATIVE: CASE EVENT DATE: 2015
